FAERS Safety Report 6453990-X (Version None)
Quarter: 2009Q4

REPORT INFORMATION
  Report Type: 
  Country: None (occurrence: None)
  Receive Date: 20091124
  Receipt Date: 20091119
  Transmission Date: 20100525
  Serious: Yes (Death)
  Sender: FDA-Public Use
  Company Number: CO-SANOFI-AVENTIS-2009SA003680

PATIENT
  Age: 73 Year
  Sex: Female

DRUGS (2)
  1. CLOPIDOGREL BISULFATE [Suspect]
     Indication: PROPHYLAXIS
     Route: 048
     Dates: start: 20091105
  2. CLOPIDOGREL BISULFATE [Suspect]
     Indication: CORONARY REVASCULARISATION
     Route: 048
     Dates: start: 20091105

REACTIONS (2)
  - EPISTAXIS [None]
  - IN-STENT CORONARY ARTERY RESTENOSIS [None]
